FAERS Safety Report 6672027-0 (Version None)
Quarter: 2010Q2

REPORT INFORMATION
  Report Type: 
  Country: None (occurrence: None)
  Receive Date: 20100406
  Receipt Date: 20100402
  Transmission Date: 20101027
  Serious: Yes (Death)
  Sender: FDA-Public Use
  Company Number: 2010SP019178

PATIENT
  Sex: Female
  Weight: 51.5 kg

DRUGS (2)
  1. TEMODAL [Suspect]
     Indication: GLIOBLASTOMA MULTIFORME
     Dosage: 200 MG/M2;QD;PO
     Route: 048
     Dates: start: 20060923, end: 20060927
  2. RAMELTEON [Concomitant]
     Indication: DISEASE RECURRENCE

REACTIONS (2)
  - DISEASE PROGRESSION [None]
  - GLIOBLASTOMA MULTIFORME [None]
